FAERS Safety Report 7791369-9 (Version None)
Quarter: 2011Q4

REPORT INFORMATION
  Report Type: 
  Country: None (occurrence: None)
  Receive Date: 20111003
  Receipt Date: 20090615
  Transmission Date: 20120403
  Serious: Yes (Hospitalization)
  Sender: FDA-Public Use
  Company Number: DE-RANBAXY-2009US-46351

PATIENT

DRUGS (5)
  1. PANTOPRAZOLE SODIUM [Suspect]
     Indication: PRODUCT USED FOR UNKNOWN INDICATION
     Dosage: UNK
     Route: 048
     Dates: end: 20090101
  2. CRESTOR [Suspect]
     Indication: DYSLIPIDAEMIA
     Dosage: UNK
     Route: 048
     Dates: end: 20090101
  3. DICLOFENAC SODIUM [Concomitant]
     Indication: PRODUCT USED FOR UNKNOWN INDICATION
     Dosage: UNK
     Route: 065
  4. TRAMADOL HCL [Concomitant]
     Indication: PRODUCT USED FOR UNKNOWN INDICATION
     Dosage: UNK
     Route: 065
  5. METFORMIN HCL [Suspect]
     Indication: TYPE 2 DIABETES MELLITUS
     Dosage: UNK, UNK
     Route: 048
     Dates: end: 20090101

REACTIONS (5)
  - DYSPNOEA [None]
  - ANGIOEDEMA [None]
  - VOMITING [None]
  - PRURITUS [None]
  - ASTHENIA [None]
